FAERS Safety Report 7791739-9 (Version None)
Quarter: 2011Q4

REPORT INFORMATION
  Report Type: 
  Country: None (occurrence: None)
  Receive Date: 20111003
  Receipt Date: 20110928
  Transmission Date: 20120403
  Serious: Yes (Death, Other)
  Sender: FDA-Public Use
  Company Number: KR-JNJFOC-20110912447

PATIENT
  Age: 66 Year
  Sex: Female

DRUGS (9)
  1. PREDNISOLONE [Concomitant]
     Indication: RHEUMATOID ARTHRITIS
     Route: 065
  2. CELECOXIB [Concomitant]
     Indication: RHEUMATOID ARTHRITIS
     Route: 065
  3. ITRACONAZOLE [Suspect]
     Indication: ASPERGILLOSIS
     Route: 065
  4. VANCOMYCIN [Suspect]
     Indication: ASPERGILLOSIS
     Route: 065
  5. VORICONAZOLE [Suspect]
     Indication: ASPERGILLOSIS
     Route: 065
  6. AZITHROMYCIN [Suspect]
     Indication: ASPERGILLOSIS
     Route: 065
  7. ADALIMUMAB [Suspect]
     Indication: RHEUMATOID ARTHRITIS
     Route: 058
  8. CEFTRIAXONE [Suspect]
     Indication: ASPERGILLOSIS
     Route: 065
  9. METHOTREXATE [Concomitant]
     Indication: RHEUMATOID ARTHRITIS
     Route: 065

REACTIONS (2)
  - HYPOTENSION [None]
  - BRONCHOPULMONARY ASPERGILLOSIS [None]
